FAERS Safety Report 20940287 (Version 1)
Quarter: 2022Q2

REPORT INFORMATION
  Report Type: Spontaneous
  Country: None (occurrence: US)
  Receive Date: 20220609
  Receipt Date: 20220609
  Transmission Date: 20220720
  Serious: Yes (Hospitalization, Other)
  Sender: FDA-Public Use
  Company Number: US-B.Braun Medical Inc.-2129676

PATIENT
  Age: 62 Year
  Sex: Female

DRUGS (2)
  1. CEFTRIAXONE SODIUM [Suspect]
     Active Substance: CEFTRIAXONE SODIUM
  2. TYVASO [Suspect]
     Active Substance: TREPROSTINIL

REACTIONS (5)
  - Syncope [Unknown]
  - Anaphylactic shock [Unknown]
  - Oxygen saturation abnormal [Unknown]
  - Dyspnoea exertional [Unknown]
  - Pyrexia [Unknown]
